FAERS Safety Report 15229370 (Version 1)
Quarter: 2018Q3

REPORT INFORMATION
  Report Type: Spontaneous
  Country: US (occurrence: US)
  Receive Date: 20180707
  Receipt Date: 20180707
  Transmission Date: 20181010
  Serious: No
  Sender: FDA-Public Use
  Company Number: None

PATIENT
  Age: 38 Year
  Sex: Female

DRUGS (1)
  1. DOXYCYCLINE MONOHYDRATE 50MG TABS [Suspect]
     Active Substance: DOXYCYCLINE
     Indication: HYPERSENSITIVITY
     Route: 048
     Dates: start: 20180614, end: 20180707

REACTIONS (3)
  - Vertigo [None]
  - Vision blurred [None]
  - Headache [None]

NARRATIVE: CASE EVENT DATE: 20180705
